FAERS Safety Report 4527023-6 (Version None)
Quarter: 2004Q4

REPORT INFORMATION
  Report Type: 
  Country: None (occurrence: None)
  Receive Date: 20041214
  Receipt Date: 20041208
  Transmission Date: 20050328
  Serious: Yes (Hospitalization)
  Sender: FDA-Public Use
  Company Number: US-MERCK-0412USA01104

PATIENT
  Age: 70 Year
  Sex: Female

DRUGS (2)
  1. VIOXX [Suspect]
     Indication: ARTHRALGIA
     Route: 048
     Dates: start: 19990101, end: 20030701
  2. ALLEGRA [Concomitant]
     Route: 065

REACTIONS (2)
  - CHEST PAIN [None]
  - HYPERTENSION [None]
